FAERS Safety Report 25051842 (Version 1)
Quarter: 2025Q1

REPORT INFORMATION
  Report Type: Spontaneous
  Country: US (occurrence: None)
  Receive Date: 20250307
  Receipt Date: 20250307
  Transmission Date: 20250409
  Serious: Yes (Other)
  Sender: FDA-CTU
  Company Number: None

PATIENT
  Age: 42 Year
  Sex: Female
  Weight: 81.45 kg

DRUGS (1)
  1. INFED [Suspect]
     Active Substance: IRON DEXTRAN
     Indication: Anaemia
     Route: 041
     Dates: start: 20250307, end: 20250307

REACTIONS (2)
  - Infusion related reaction [None]
  - Paraesthesia oral [None]

NARRATIVE: CASE EVENT DATE: 20250307
